FAERS Safety Report 9236614 (Version 2)
Quarter: 2013Q2

REPORT INFORMATION
  Report Type: Spontaneous
  Country: CA (occurrence: CA)
  Receive Date: 20130417
  Receipt Date: 20130625
  Transmission Date: 20140414
  Serious: Yes (Death, Other)
  Sender: FDA-Public Use
  Company Number: CA-JNJFOC-20130406810

PATIENT
  Age: 73 Year
  Sex: Female

DRUGS (1)
  1. XARELTO [Suspect]
     Indication: PRODUCT USED FOR UNKNOWN INDICATION
     Route: 048
     Dates: start: 20130128

REACTIONS (10)
  - Pulseless electrical activity [Fatal]
  - Pulmonary hypertension [Fatal]
  - Cardiac arrest [Fatal]
  - Shock [Unknown]
  - Disseminated intravascular coagulation [Unknown]
  - Multi-organ failure [Unknown]
  - Pleural effusion [Unknown]
  - Tracheal haemorrhage [Unknown]
  - Pulmonary haemorrhage [Unknown]
  - Gastrointestinal haemorrhage [Unknown]
